FAERS Safety Report 13071752 (Version 1)
Quarter: 2016Q4

REPORT INFORMATION
  Report Type: Spontaneous
  Country: US (occurrence: US)
  Receive Date: 20161228
  Receipt Date: 20161228
  Transmission Date: 20170207
  Serious: Yes (Hospitalization)
  Sender: FDA-Public Use
  Company Number: None

PATIENT
  Age: 66 Year
  Sex: Male
  Weight: 121.5 kg

DRUGS (2)
  1. ACETAMINOPHEN/HYDROCODONE [Suspect]
     Active Substance: ACETAMINOPHEN\HYDROCODONE
     Indication: PAIN
     Dosage: 10/325 MG PO
     Route: 048
     Dates: start: 20141023
  2. IBUPROFEN. [Suspect]
     Active Substance: IBUPROFEN
     Indication: PAIN
     Route: 048
     Dates: start: 20161031, end: 20161102

REACTIONS (4)
  - Abdominal discomfort [None]
  - Gastritis [None]
  - Blood pressure inadequately controlled [None]
  - Abdominal pain [None]

NARRATIVE: CASE EVENT DATE: 20161102
